FAERS Safety Report 9228909 (Version 1)
Quarter: 2013Q2

REPORT INFORMATION
  Report Type: Spontaneous
  Country: US (occurrence: US)
  Receive Date: 20130412
  Receipt Date: 20130412
  Transmission Date: 20140414
  Serious: Yes (Hospitalization)
  Sender: FDA-Public Use
  Company Number: US-BRISTOL-MYERS SQUIBB COMPANY-18742783

PATIENT
  Age: 69 Year
  Sex: Female

DRUGS (12)
  1. WARFARIN SODIUM [Suspect]
  2. HYDROCODONE [Suspect]
  3. CLOPIDOGREL BISULFATE [Suspect]
  4. ENOXAPARIN [Suspect]
  5. OXYCODONE [Suspect]
  6. LEVOTHYROXINE [Suspect]
  7. ROBAXIN [Suspect]
  8. VITAMIN D [Suspect]
  9. ALBUTEROL [Suspect]
  10. AZITHROMYCIN [Suspect]
  11. CLONAZEPAM [Suspect]
  12. LACTULOSE [Suspect]

REACTIONS (2)
  - Hearing impaired [Unknown]
  - Pain [Unknown]
